FAERS Safety Report 9853442 (Version 1)
Quarter: 2014Q1

REPORT INFORMATION
  Report Type: Spontaneous
  Country: US (occurrence: US)
  Receive Date: 20140129
  Receipt Date: 20140129
  Transmission Date: 20141002
  Serious: Yes (Hospitalization)
  Sender: FDA-Public Use
  Company Number: US-GLAXOSMITHKLINE-A1057694A

PATIENT
  Age: 41 Year
  Sex: Male

DRUGS (5)
  1. ADVAIR HFA [Suspect]
     Indication: ASTHMA
     Dosage: 2PUFF TWICE PER DAY
     Route: 055
     Dates: start: 2013
  2. VENTOLIN HFA [Suspect]
     Indication: ASTHMA
     Dosage: 90MCG AS REQUIRED
     Route: 055
     Dates: start: 2013
  3. NEBULIZER [Concomitant]
  4. WATER PILL [Concomitant]
  5. ADVAIR HFA [Concomitant]
     Dates: start: 2007, end: 2013

REACTIONS (5)
  - Pneumonia viral [Recovered/Resolved]
  - Mechanical ventilation [Recovered/Resolved]
  - Intensive care [Recovered/Resolved]
  - Gastrointestinal tube insertion [Recovered/Resolved]
  - Influenza [Recovered/Resolved]
